FAERS Safety Report 18658786 (Version 4)
Quarter: 2021Q2

REPORT INFORMATION
  Report Type: Spontaneous
  Country: GB (occurrence: GB)
  Receive Date: 20201224
  Receipt Date: 20210628
  Transmission Date: 20210717
  Serious: Yes (Other)
  Sender: FDA-Public Use
  Company Number: GB-BIOVITRUM-2020GB7887

PATIENT
  Age: 54 Year
  Sex: Male

DRUGS (42)
  1. FULTIUM D3 [Concomitant]
     Active Substance: CHOLECALCIFEROL
     Dates: start: 2013, end: 2015
  2. PREGABALIN. [Concomitant]
     Active Substance: PREGABALIN
     Dates: start: 2015
  3. ASCORBIC ACID. [Concomitant]
     Active Substance: ASCORBIC ACID
     Dates: start: 2016
  4. AMITRIPTYLINE [Concomitant]
     Active Substance: AMITRIPTYLINE
     Dates: start: 2015
  5. LIDOCAINE. [Concomitant]
     Active Substance: LIDOCAINE
     Dosage: 5 PERCENT
     Dates: start: 2015
  6. MEBEVERINE [Concomitant]
     Active Substance: MEBEVERINE
     Dates: start: 2019
  7. PIROXICAM. [Concomitant]
     Active Substance: PIROXICAM
     Dates: start: 2013
  8. LOSARTAN. [Concomitant]
     Active Substance: LOSARTAN
     Dates: start: 2013
  9. MINOXIDIL. [Concomitant]
     Active Substance: MINOXIDIL
     Dates: start: 2013
  10. PREGABALIN. [Concomitant]
     Active Substance: PREGABALIN
     Dates: start: 2013
  11. TYR RED COOLER [Concomitant]
     Dates: start: 2017, end: 2019
  12. ORFADIN [Suspect]
     Active Substance: NITISINONE
     Dates: start: 2020
  13. BENDROFLUMETHIAZIDE [Concomitant]
     Active Substance: BENDROFLUMETHIAZIDE
     Dates: start: 2013
  14. PARACETAMOL [Concomitant]
     Active Substance: ACETAMINOPHEN
     Dates: start: 2015
  15. ACCRETE D3 [Concomitant]
     Active Substance: CALCIUM CARBONATE\CHOLECALCIFEROL
     Dates: start: 2016
  16. FLUOXETINE [Concomitant]
     Active Substance: FLUOXETINE HYDROCHLORIDE
     Dates: start: 2013
  17. LOSARTAN. [Concomitant]
     Active Substance: LOSARTAN
     Dosage: TABLET
     Dates: start: 2020
  18. OXIDIL [Concomitant]
     Active Substance: CEFTRIAXONE SODIUM
     Dates: start: 2020
  19. BENDROFLUAZIDE [Concomitant]
     Active Substance: BENDROFLUMETHIAZIDE
     Dates: start: 2014
  20. OMEPRAZOLE. [Concomitant]
     Active Substance: OMEPRAZOLE
     Dates: start: 2016
  21. CETRABEN [Concomitant]
     Dates: start: 2018
  22. ORFADIN [Suspect]
     Active Substance: NITISINONE
     Dates: start: 2019
  23. BENDROFLUMETHIAZIDE [Concomitant]
     Active Substance: BENDROFLUMETHIAZIDE
     Dates: start: 2015
  24. CYANOCOBALAMIN. [Concomitant]
     Active Substance: CYANOCOBALAMIN
     Dates: start: 2013
  25. ORFADIN [Suspect]
     Active Substance: NITISINONE
     Indication: ALKAPTONURIA
     Dates: start: 2013
  26. ORFADIN [Suspect]
     Active Substance: NITISINONE
     Dates: start: 2014
  27. ALENDRONIC ACID [Concomitant]
     Active Substance: ALENDRONIC ACID
     Dates: start: 2015, end: 2018
  28. ASCORBIC ACID. [Concomitant]
     Active Substance: ASCORBIC ACID
     Dates: start: 2015
  29. DOXAZOSIN [Concomitant]
     Active Substance: DOXAZOSIN MESYLATE
     Dates: start: 2013
  30. SIMVASTATIN. [Concomitant]
     Active Substance: SIMVASTATIN
     Dates: start: 2013
  31. ORFADIN [Suspect]
     Active Substance: NITISINONE
     Dates: start: 2015
  32. ORFADIN [Suspect]
     Active Substance: NITISINONE
     Dates: start: 2016
  33. CYNOCOBALAMIN [Concomitant]
  34. TAMULOSIN [Concomitant]
     Active Substance: TAMSULOSIN
     Dates: start: 2015
  35. VITAMIN D [Concomitant]
     Active Substance: VITAMIN D NOS
     Dates: start: 2016
  36. FOLIC ACID. [Concomitant]
     Active Substance: FOLIC ACID
     Dates: start: 2016, end: 2019
  37. VITAMIN CAPSULES [Concomitant]
     Dates: start: 2015
  38. ORFADIN [Suspect]
     Active Substance: NITISINONE
     Dates: start: 2017
  39. ORFADIN [Suspect]
     Active Substance: NITISINONE
     Dates: start: 2018
  40. OXYCODONE [Concomitant]
     Active Substance: OXYCODONE
     Dates: start: 2013
  41. PEPTAC [Concomitant]
     Active Substance: RANITIDINE HYDROCHLORIDE
     Dates: start: 2017
  42. SIMVASTATIN. [Concomitant]
     Active Substance: SIMVASTATIN
     Dates: start: 2020

REACTIONS (4)
  - Cataract [Unknown]
  - Amino acid level increased [Not Recovered/Not Resolved]
  - Conjunctivitis [Not Recovered/Not Resolved]
  - Lenticular opacities [Not Recovered/Not Resolved]

NARRATIVE: CASE EVENT DATE: 2013
